FAERS Safety Report 6109183-9 (Version None)
Quarter: 2009Q1

REPORT INFORMATION
  Report Type: 
  Country: None (occurrence: None)
  Receive Date: 20090306
  Receipt Date: 20090226
  Transmission Date: 20090719
  Serious: Yes (Other)
  Sender: FDA-Public Use
  Company Number: 2009JP000545

PATIENT
  Age: 70 Year
  Sex: Female

DRUGS (8)
  1. PROGRAF [Suspect]
     Indication: RHEUMATOID ARTHRITIS
     Dosage: 0.5 MG, UID/QD, ORAL
     Route: 048
     Dates: start: 20090109, end: 20090119
  2. ENBREL (ETANERCEPT) FORMULATION [Concomitant]
  3. BENET (RISEDRONATE SODIUM) [Concomitant]
  4. FERO-GRADUMET (FERROUS SULFATE) FORMULATION [Concomitant]
  5. LANSOPRAZOLE [Concomitant]
  6. LOXONIN (LOXOPROFEN SODIUM) [Concomitant]
  7. MARZULENE-S (LEVOGLUTAMIDE, SODIUM GUALENATE, AZULENE) FRANULE [Concomitant]
  8. INTEBAN (INDOMETACIN) SUPPOSITORY [Concomitant]

REACTIONS (6)
  - ABASIA [None]
  - ASTHENIA [None]
  - DYSPNOEA [None]
  - HYPOAESTHESIA [None]
  - MUSCULOSKELETAL STIFFNESS [None]
  - PALPITATIONS [None]
